FAERS Safety Report 12171002 (Version 3)
Quarter: 2016Q2

REPORT INFORMATION
  Report Type: Spontaneous
  Country: US (occurrence: US)
  Receive Date: 20160311
  Receipt Date: 20160617
  Transmission Date: 20160815
  Serious: Yes (Other)
  Sender: FDA-Public Use
  Company Number: US-TEVA-642287ACC

PATIENT
  Age: 18 Year
  Sex: Female
  Weight: 49.49 kg

DRUGS (5)
  1. PARAGARD T 380A [Suspect]
     Active Substance: COPPER
     Indication: CONTRACEPTION
     Dates: start: 20151029, end: 20160217
  2. XANAX [Concomitant]
     Active Substance: ALPRAZOLAM
  3. KLONOPIN [Concomitant]
     Active Substance: CLONAZEPAM
  4. VISTARIL [Concomitant]
     Active Substance: HYDROXYZINE PAMOATE
  5. TRAZODONE [Concomitant]
     Active Substance: TRAZODONE HYDROCHLORIDE

REACTIONS (9)
  - Lyme disease [Unknown]
  - Vulvovaginal burning sensation [Unknown]
  - Muscle spasms [Recovered/Resolved]
  - Vaginal haemorrhage [Unknown]
  - Infection [Unknown]
  - Device dislocation [Unknown]
  - Vulvovaginal pain [Unknown]
  - Vaginal discharge [Unknown]
  - Fungal infection [Unknown]

NARRATIVE: CASE EVENT DATE: 20160212
